FAERS Safety Report 21587010 (Version 1)
Quarter: 2022Q4

REPORT INFORMATION
  Report Type: Spontaneous
  Country: US (occurrence: None)
  Receive Date: 20221110
  Receipt Date: 20221110
  Transmission Date: 20230112
  Serious: Yes (Other)
  Sender: FDA-Public Use
  Company Number: None

PATIENT
  Age: 33 Year
  Sex: Female
  Weight: 63.05 kg

DRUGS (4)
  1. VILAZODONE [Suspect]
     Active Substance: VILAZODONE
     Indication: Depression
     Dosage: FREQUENCY : DAILY;?
     Route: 048
     Dates: start: 20221015
  2. VILAZODONE [Suspect]
     Active Substance: VILAZODONE
     Indication: Generalised anxiety disorder
  3. VILAZODONE [Suspect]
     Active Substance: VILAZODONE
     Indication: Depression
     Dosage: FREQUENCY : DAILY;?
     Route: 048
     Dates: start: 20220920, end: 20221014
  4. VILAZODONE [Suspect]
     Active Substance: VILAZODONE
     Indication: Generalised anxiety disorder

REACTIONS (5)
  - Headache [None]
  - Myalgia [None]
  - Irritability [None]
  - Drug ineffective [None]
  - Product substitution issue [None]

NARRATIVE: CASE EVENT DATE: 20220920
